FAERS Safety Report 4322704-1 (Version None)
Quarter: 2004Q1

REPORT INFORMATION
  Report Type: 
  Country: None (occurrence: None)
  Receive Date: 20040319
  Receipt Date: 20040311
  Transmission Date: 20041129
  Serious: Yes (Hospitalization)
  Sender: FDA-Public Use
  Company Number: 2003-11-1164

PATIENT
  Age: 57 Year
  Sex: Male
  Weight: 88.4514 kg

DRUGS (4)
  1. INTRON A [Suspect]
     Indication: HEPATITIS C
     Dosage: 3.0-1.5 TIW SUBCUTANEO
     Route: 058
     Dates: start: 20030513, end: 20030617
  2. REBETOL [Suspect]
     Indication: HEPATITIS C
     Dosage: 1200 MG QD ORAL
     Route: 048
     Dates: start: 20030513, end: 20030617
  3. RABEPRAZOLE SODIUM [Concomitant]
  4. SPIRONOLACTONE [Concomitant]

REACTIONS (16)
  - ALANINE AMINOTRANSFERASE INCREASED [None]
  - ASPARTATE AMINOTRANSFERASE INCREASED [None]
  - BACK PAIN [None]
  - BLOOD BILIRUBIN INCREASED [None]
  - DERMATITIS EXFOLIATIVE [None]
  - DIFFICULTY IN WALKING [None]
  - DRUG INEFFECTIVE [None]
  - EATING DISORDER [None]
  - HAIR GROWTH ABNORMAL [None]
  - INFECTION [None]
  - MEDICATION ERROR [None]
  - MEMORY IMPAIRMENT [None]
  - OEDEMA PERIPHERAL [None]
  - RADIATION INJURY [None]
  - RASH [None]
  - SALIVARY HYPERSECRETION [None]
